FAERS Safety Report 4295302-6 (Version None)
Quarter: 2004Q1

REPORT INFORMATION
  Report Type: 
  Country: None (occurrence: None)
  Receive Date: 20040212
  Receipt Date: 20040206
  Transmission Date: 20041129
  Serious: Yes (Other)
  Sender: FDA-Public Use
  Company Number: 200410410GDS

PATIENT
  Age: 85 Year
  Sex: Female

DRUGS (2)
  1. ASPIRIN [Suspect]
  2. DIPYRIDAMOLE [Suspect]

REACTIONS (2)
  - CEREBRAL INFARCTION [None]
  - HAEMORRHAGE INTRACRANIAL [None]
